FAERS Safety Report 13754146 (Version 2)
Quarter: 2017Q3

REPORT INFORMATION
  Report Type: Spontaneous
  Country: IT (occurrence: IT)
  Receive Date: 20170714
  Receipt Date: 20170728
  Transmission Date: 20171127
  Serious: Yes (Other)
  Sender: FDA-Public Use
  Company Number: IT-TEVA-784928ACC

PATIENT
  Age: 40 Year
  Sex: Male

DRUGS (1)
  1. OLANZAPINA TEVA - TEVA B.V. [Suspect]
     Active Substance: OLANZAPINE
     Indication: SCHIZOPHRENIA
     Dosage: 15 MILLIGRAM DAILY;
     Route: 048

REACTIONS (2)
  - Drug ineffective [Recovering/Resolving]
  - Irritability [Recovering/Resolving]

NARRATIVE: CASE EVENT DATE: 20170301
